FAERS Safety Report 5893009-2 (Version None)
Quarter: 2008Q3

REPORT INFORMATION
  Report Type: 
  Country: None (occurrence: None)
  Receive Date: 20080923
  Receipt Date: 20080623
  Transmission Date: 20090109
  Serious: No
  Sender: FDA-Public Use
  Company Number: US-ASTRAZENECA-2007UW07506

PATIENT
  Age: 10238 Day
  Sex: Female
  Weight: 102.7 kg

DRUGS (7)
  1. SEROQUEL [Suspect]
     Indication: SLEEP DISORDER
     Route: 048
     Dates: start: 20021021, end: 20021109
  2. SEROQUEL [Suspect]
     Indication: MAJOR DEPRESSION
     Route: 048
     Dates: start: 20021021, end: 20021109
  3. XENICAL [Concomitant]
     Dates: start: 20020523, end: 20030101
  4. ABILIFY [Concomitant]
     Dates: start: 20050208
  5. ZYPREXA [Concomitant]
     Dates: start: 20030101, end: 20050208
  6. LEXAPRO [Concomitant]
     Dates: start: 20030101
  7. MOBAN [Concomitant]
     Dates: start: 19960101, end: 20030101

REACTIONS (4)
  - BLOOD CHOLESTEROL INCREASED [None]
  - BLOOD TRIGLYCERIDES INCREASED [None]
  - CARPAL TUNNEL SYNDROME [None]
  - TYPE 2 DIABETES MELLITUS [None]
